FAERS Safety Report 8353864 (Version 3)
Quarter: 2012Q4

REPORT INFORMATION
  Report Type: 
  Country: NO (occurrence: None)
  Receive Date: 20120112
  Receipt Date: 20120828
  Transmission Date: 20130627
  Serious: Yes (Life-Threatening)
  Sender: FDA-Public Use
  Company Number: THQ2012A00148

PATIENT
  Age: 49 Year
  Sex: Male

DRUGS (5)
  1. LANSOPRAZOLE [Suspect]
     Indication: REFLUX ESOPHAGITIS
     Dosage: 30 MG (1D)
     Dates: start: 1995
  2. LANSOPRAZOLE [Suspect]
     Indication: GASTROOESOPHAGEAL REFLUX DISEASE
     Dosage: 30 MG (1D)
     Dates: start: 1995
  3. RANITIDINE [Suspect]
     Indication: GASTROESOPHAGEAL REFLUX DISEASE
  4. MONTELUKAST [Concomitant]
  5. FLUTICASONE/SALMETEROL (SALMETEROL, FLUTICASONE) [Concomitant]

REACTIONS (10)
  - Neuroendocrine carcinoma [None]
  - Dysphagia [None]
  - Dyspepsia [None]
  - Weight decreased [None]
  - Hypergastrinaemia [None]
  - Enterochromaffin cell hyperplasia [None]
  - Lymphadenopathy mediastinal [None]
  - Intervertebral disc protrusion [None]
  - Drug effect decreased [None]
  - Hiatus hernia [None]
